FAERS Safety Report 19015043 (Version 1)
Quarter: 2021Q1

REPORT INFORMATION
  Report Type: Spontaneous
  Country: CA (occurrence: CA)
  Receive Date: 20210316
  Receipt Date: 20210316
  Transmission Date: 20210420
  Serious: Yes (Death, Hospitalization, Disabling)
  Sender: FDA-Public Use
  Company Number: CA-PFIZER INC-2021177999

PATIENT
  Sex: Male
  Weight: 92 kg

DRUGS (56)
  1. DAPTOMYCIN. [Suspect]
     Active Substance: DAPTOMYCIN
     Indication: INTERVERTEBRAL DISCITIS
     Dosage: UNK
  2. CUBICIN [Suspect]
     Active Substance: DAPTOMYCIN
     Indication: OESOPHAGEAL ABSCESS
  3. CEFTAROLINE FOSAMIL [Suspect]
     Active Substance: CEFTAROLINE FOSAMIL
     Indication: INTERVERTEBRAL DISCITIS
  4. VANCOMYCIN HCL [Suspect]
     Active Substance: VANCOMYCIN HYDROCHLORIDE
     Indication: SEPSIS
  5. LINEZOLID. [Suspect]
     Active Substance: LINEZOLID
     Indication: SEPSIS
  6. TIGECYCLINE. [Suspect]
     Active Substance: TIGECYCLINE
     Indication: INTERVERTEBRAL DISCITIS
     Dosage: UNK
  7. DOXYCYCLINE HYCLATE. [Suspect]
     Active Substance: DOXYCYCLINE HYCLATE
     Indication: PARASPINAL ABSCESS
  8. DAPTOMYCIN. [Suspect]
     Active Substance: DAPTOMYCIN
     Indication: BURKHOLDERIA CEPACIA COMPLEX INFECTION
  9. CEFTAROLINE FOSAMIL [Suspect]
     Active Substance: CEFTAROLINE FOSAMIL
     Indication: BURKHOLDERIA CEPACIA COMPLEX INFECTION
  10. RIFAMPIN. [Suspect]
     Active Substance: RIFAMPIN
     Indication: INTERVERTEBRAL DISCITIS
  11. RIFAMPIN. [Suspect]
     Active Substance: RIFAMPIN
     Indication: PARASPINAL ABSCESS
  12. VANCOMYCIN HCL [Suspect]
     Active Substance: VANCOMYCIN HYDROCHLORIDE
     Indication: OESOPHAGEAL ABSCESS
  13. TIGECYCLINE. [Suspect]
     Active Substance: TIGECYCLINE
     Indication: PARASPINAL ABSCESS
  14. TIGECYCLINE. [Suspect]
     Active Substance: TIGECYCLINE
     Indication: BURKHOLDERIA CEPACIA COMPLEX INFECTION
  15. CUBICIN [Suspect]
     Active Substance: DAPTOMYCIN
     Indication: INADEQUATE DIET
  16. VANCOMYCIN HCL [Suspect]
     Active Substance: VANCOMYCIN HYDROCHLORIDE
     Indication: INADEQUATE DIET
  17. LINEZOLID. [Suspect]
     Active Substance: LINEZOLID
     Indication: INTERVERTEBRAL DISCITIS
     Dosage: UNK
  18. TIGECYCLINE. [Suspect]
     Active Substance: TIGECYCLINE
     Indication: OSTEOMYELITIS
  19. TIGECYCLINE. [Suspect]
     Active Substance: TIGECYCLINE
     Indication: OESOPHAGEAL ABSCESS
  20. TIGECYCLINE. [Suspect]
     Active Substance: TIGECYCLINE
     Indication: SEPSIS
  21. DOXYCYCLINE HYCLATE. [Suspect]
     Active Substance: DOXYCYCLINE HYCLATE
     Indication: INTERVERTEBRAL DISCITIS
     Dosage: UNK
  22. DAPTOMYCIN. [Suspect]
     Active Substance: DAPTOMYCIN
     Indication: OESOPHAGEAL ABSCESS
  23. DAPTOMYCIN. [Suspect]
     Active Substance: DAPTOMYCIN
     Indication: SEPSIS
  24. CEFTAROLINE FOSAMIL [Suspect]
     Active Substance: CEFTAROLINE FOSAMIL
     Indication: PARASPINAL ABSCESS
  25. RIFAMPIN. [Suspect]
     Active Substance: RIFAMPIN
     Indication: OESOPHAGEAL ABSCESS
  26. VANCOMYCIN HCL [Suspect]
     Active Substance: VANCOMYCIN HYDROCHLORIDE
     Indication: OSTEOMYELITIS
  27. LINEZOLID. [Suspect]
     Active Substance: LINEZOLID
     Indication: INADEQUATE DIET
  28. DOXYCYCLINE HYCLATE. [Suspect]
     Active Substance: DOXYCYCLINE HYCLATE
     Indication: INADEQUATE DIET
  29. DAPTOMYCIN. [Suspect]
     Active Substance: DAPTOMYCIN
     Indication: OSTEOMYELITIS
  30. DAPTOMYCIN. [Suspect]
     Active Substance: DAPTOMYCIN
     Indication: PARASPINAL ABSCESS
  31. CUBICIN [Suspect]
     Active Substance: DAPTOMYCIN
     Indication: OSTEOMYELITIS
  32. CUBICIN [Suspect]
     Active Substance: DAPTOMYCIN
     Indication: SEPSIS
  33. RIFAMPIN. [Suspect]
     Active Substance: RIFAMPIN
     Indication: OSTEOMYELITIS
  34. VANCOMYCIN HCL [Suspect]
     Active Substance: VANCOMYCIN HYDROCHLORIDE
     Indication: PARASPINAL ABSCESS
  35. LINEZOLID. [Suspect]
     Active Substance: LINEZOLID
     Indication: OSTEOMYELITIS
  36. DOXYCYCLINE HYCLATE. [Suspect]
     Active Substance: DOXYCYCLINE HYCLATE
     Indication: OESOPHAGEAL ABSCESS
  37. DAPTOMYCIN. [Suspect]
     Active Substance: DAPTOMYCIN
     Indication: INADEQUATE DIET
  38. CEFTAROLINE FOSAMIL [Suspect]
     Active Substance: CEFTAROLINE FOSAMIL
     Indication: INADEQUATE DIET
  39. RIFAMPIN. [Suspect]
     Active Substance: RIFAMPIN
     Indication: BURKHOLDERIA CEPACIA COMPLEX INFECTION
  40. RIFAMPIN. [Suspect]
     Active Substance: RIFAMPIN
     Indication: SEPSIS
  41. LINEZOLID. [Suspect]
     Active Substance: LINEZOLID
     Indication: OESOPHAGEAL ABSCESS
  42. DOXYCYCLINE HYCLATE. [Suspect]
     Active Substance: DOXYCYCLINE HYCLATE
     Indication: OSTEOMYELITIS
  43. DOXYCYCLINE HYCLATE. [Suspect]
     Active Substance: DOXYCYCLINE HYCLATE
     Indication: BURKHOLDERIA CEPACIA COMPLEX INFECTION
  44. DOXYCYCLINE HYCLATE. [Suspect]
     Active Substance: DOXYCYCLINE HYCLATE
     Indication: SEPSIS
  45. CUBICIN [Suspect]
     Active Substance: DAPTOMYCIN
     Indication: PARASPINAL ABSCESS
  46. CUBICIN [Suspect]
     Active Substance: DAPTOMYCIN
     Indication: BURKHOLDERIA CEPACIA COMPLEX INFECTION
  47. CEFTAROLINE FOSAMIL [Suspect]
     Active Substance: CEFTAROLINE FOSAMIL
     Indication: OSTEOMYELITIS
  48. CEFTAROLINE FOSAMIL [Suspect]
     Active Substance: CEFTAROLINE FOSAMIL
     Indication: SEPSIS
  49. VANCOMYCIN HCL [Suspect]
     Active Substance: VANCOMYCIN HYDROCHLORIDE
     Indication: INTERVERTEBRAL DISCITIS
     Dosage: UNK
  50. VANCOMYCIN HCL [Suspect]
     Active Substance: VANCOMYCIN HYDROCHLORIDE
     Indication: BURKHOLDERIA CEPACIA COMPLEX INFECTION
  51. LINEZOLID. [Suspect]
     Active Substance: LINEZOLID
     Indication: PARASPINAL ABSCESS
  52. LINEZOLID. [Suspect]
     Active Substance: LINEZOLID
     Indication: BURKHOLDERIA CEPACIA COMPLEX INFECTION
  53. TIGECYCLINE. [Suspect]
     Active Substance: TIGECYCLINE
     Indication: INADEQUATE DIET
  54. CUBICIN [Suspect]
     Active Substance: DAPTOMYCIN
     Indication: INTERVERTEBRAL DISCITIS
     Dosage: UNK
  55. CEFTAROLINE FOSAMIL [Suspect]
     Active Substance: CEFTAROLINE FOSAMIL
     Indication: OESOPHAGEAL ABSCESS
  56. RIFAMPIN. [Suspect]
     Active Substance: RIFAMPIN
     Indication: INADEQUATE DIET

REACTIONS (6)
  - General physical health deterioration [Fatal]
  - Staphylococcal infection [Fatal]
  - Transaminases increased [Fatal]
  - Treatment failure [Fatal]
  - Hypophagia [Fatal]
  - Thrombocytopenia [Fatal]
